FAERS Safety Report 5431384-3 (Version None)
Quarter: 2007Q3

REPORT INFORMATION
  Report Type: 
  Country: None (occurrence: None)
  Receive Date: 20070830
  Receipt Date: 20070824
  Transmission Date: 20080115
  Serious: Yes (Other)
  Sender: FDA-Public Use
  Company Number: US-AMGEN-QUU240422

PATIENT
  Sex: Female

DRUGS (2)
  1. ENBREL [Suspect]
     Indication: RHEUMATOID ARTHRITIS
     Dates: start: 20070701
  2. ENBREL [Suspect]
     Route: 058
     Dates: start: 20070820

REACTIONS (2)
  - INJECTION SITE PAIN [None]
  - LOSS OF CONSCIOUSNESS [None]
